FAERS Safety Report 18139225 (Version 1)
Quarter: 2020Q3

REPORT INFORMATION
  Report Type: Spontaneous
  Country: US (occurrence: US)
  Receive Date: 20200811
  Receipt Date: 20200811
  Transmission Date: 20201103
  Serious: Yes (Hospitalization)
  Sender: FDA-Public Use
  Company Number: None

PATIENT
  Sex: Male

DRUGS (27)
  1. GABAPENTIN. [Concomitant]
     Active Substance: GABAPENTIN
  2. METOLAZONE. [Concomitant]
     Active Substance: METOLAZONE
  3. PLAQUENIL [Concomitant]
     Active Substance: HYDROXYCHLOROQUINE SULFATE
  4. POT CHLORIDE [Concomitant]
     Active Substance: POTASSIUM CHLORIDE
  5. VITAMIN B12 [Concomitant]
     Active Substance: CYANOCOBALAMIN
  6. CARVEDILOL. [Concomitant]
     Active Substance: CARVEDILOL
  7. MONTELUKAST [Concomitant]
     Active Substance: MONTELUKAST SODIUM
  8. ONDANSETRON [Concomitant]
     Active Substance: ONDANSETRON
  9. FLUTICASONE. [Concomitant]
     Active Substance: FLUTICASONE
  10. FUROSEMIDE. [Concomitant]
     Active Substance: FUROSEMIDE
  11. MYCOPHENOLATE [Concomitant]
     Active Substance: MYCOPHENOLIC ACID
  12. HYDROCO/APAP [Concomitant]
     Active Substance: ACETAMINOPHEN\HYDROCODONE
  13. HYDROXYCHLOR [Concomitant]
     Active Substance: HYDROXYCHLOROQUINE
  14. PREDNISOLONE. [Concomitant]
     Active Substance: PREDNISOLONE
  15. PANTOPRAZOLE [Concomitant]
     Active Substance: PANTOPRAZOLE
  16. PREDNISONE. [Concomitant]
     Active Substance: PREDNISONE
  17. TADALAFIL 20MG [Suspect]
     Active Substance: TADALAFIL
     Indication: PULMONARY ARTERIAL HYPERTENSION
     Route: 048
     Dates: start: 20140710
  18. PRAVASTATIN. [Concomitant]
     Active Substance: PRAVASTATIN
  19. ALLOPURINOL. [Concomitant]
     Active Substance: ALLOPURINOL
  20. SYMBICORT [Concomitant]
     Active Substance: BUDESONIDE\FORMOTEROL FUMARATE DIHYDRATE
  21. IPRATROPIUM [Concomitant]
     Active Substance: IPRATROPIUM
  22. SINGULAIR [Concomitant]
     Active Substance: MONTELUKAST SODIUM
  23. TRAMADOL. [Concomitant]
     Active Substance: TRAMADOL
  24. COREG [Concomitant]
     Active Substance: CARVEDILOL
  25. MELOXICAM. [Concomitant]
     Active Substance: MELOXICAM
  26. DIOVAN [Concomitant]
     Active Substance: VALSARTAN
  27. VITAMIN D [Concomitant]
     Active Substance: VITAMIN D NOS

REACTIONS (2)
  - Product dose omission issue [None]
  - Cardiac failure congestive [None]
